FAERS Safety Report 20715395 (Version 2)
Quarter: 2022Q3

REPORT INFORMATION
  Report Type: Report from Study
  Country: AU (occurrence: AU)
  Receive Date: 20220415
  Receipt Date: 20220919
  Transmission Date: 20221026
  Serious: Yes (Other)
  Sender: FDA-Public Use
  Company Number: AU-BIOMARIN PHARMACEUTICAL INC.-AU-2022-142570

PATIENT

DRUGS (1)
  1. INVESTIGATIONAL PRODUCT [Suspect]
     Active Substance: INVESTIGATIONAL PRODUCT
     Indication: Osteochondrodysplasia
     Dosage: 15 MICROGRAM/KILOGRAM, QD
     Route: 058
     Dates: start: 20190716

REACTIONS (1)
  - Kyphoscoliosis [Not Recovered/Not Resolved]

NARRATIVE: CASE EVENT DATE: 20220406
